FAERS Safety Report 10076550 (Version 9)
Quarter: 2019Q3

REPORT INFORMATION
  Report Type: Spontaneous
  Country: US (occurrence: US)
  Receive Date: 20140414
  Receipt Date: 20190903
  Transmission Date: 20191004
  Serious: Yes (Other)
  Sender: FDA-Public Use
  Company Number: US-PFIZER INC-2014101216

PATIENT
  Age: 55 Year
  Sex: Female

DRUGS (1)
  1. LYRICA [Suspect]
     Active Substance: PREGABALIN
     Indication: FIBROMYALGIA
     Dosage: 100 MG, 2X/DAY

REACTIONS (9)
  - Herpes zoster [Unknown]
  - Breast cancer [Recovered/Resolved]
  - Pain [Unknown]
  - Oropharyngeal discomfort [Unknown]
  - Poor quality sleep [Unknown]
  - Neuropathy peripheral [Unknown]
  - Intentional product misuse [Unknown]
  - Neuralgia [Not Recovered/Not Resolved]
  - Nerve injury [Unknown]
